FAERS Safety Report 8238131-0 (Version None)
Quarter: 2012Q1

REPORT INFORMATION
  Report Type: 
  Country: None (occurrence: None)
  Receive Date: 20120327
  Receipt Date: 20120319
  Transmission Date: 20120608
  Serious: Yes (Other)
  Sender: FDA-Public Use
  Company Number: US-BAYER-2011-107110

PATIENT
  Age: 30 Year
  Sex: Female
  Weight: 68.027 kg

DRUGS (10)
  1. YAZ [Suspect]
     Indication: MENSTRUAL CYCLE MANAGEMENT
  2. EFFEXOR XR [Concomitant]
     Indication: DEPRESSION
  3. EXCEDRIN (MIGRAINE) [Concomitant]
     Dosage: UNK
     Dates: start: 20000101
  4. ALLEGRA [Concomitant]
     Indication: SEASONAL ALLERGY
     Dosage: 30 MG, BID
     Route: 048
     Dates: start: 20000101
  5. DROSPIRENONE AND ETHINYL ESTRADIOL [Suspect]
     Indication: CONTRACEPTION
     Dosage: UNK
     Dates: start: 20100701
  6. IBUPROFEN [Concomitant]
     Indication: ANALGESIC THERAPY
     Dosage: UNK
     Dates: start: 19900101
  7. MINOCYCLINE HCL [Concomitant]
     Indication: ACNE
     Dosage: UNK
     Route: 048
     Dates: start: 20050101
  8. YAZ [Suspect]
     Indication: CONTRACEPTION
     Dosage: UNK
     Dates: start: 20070725, end: 20100703
  9. EFFEXOR XR [Concomitant]
     Indication: ANXIETY
     Dosage: 150 MG, UNK
     Dates: start: 20060101
  10. ALBUTEROL [Concomitant]
     Dosage: UNK UNK, PRN
     Route: 045

REACTIONS (8)
  - PAIN [None]
  - CHOLECYSTITIS CHRONIC [None]
  - DISCOMFORT [None]
  - CHOLELITHIASIS [None]
  - INJURY [None]
  - BILIARY TRACT DISORDER [None]
  - PANCREATITIS CHRONIC [None]
  - ABDOMINAL PAIN UPPER [None]
